FAERS Safety Report 4894443-X (Version None)
Quarter: 2006Q1

REPORT INFORMATION
  Report Type: 
  Country: None (occurrence: None)
  Receive Date: 20060127
  Receipt Date: 20051129
  Transmission Date: 20060701
  Serious: Yes (Other)
  Sender: FDA-Public Use
  Company Number: US-ROCHE-426799

PATIENT
  Age: 64 Year
  Sex: Female
  Weight: 63 kg

DRUGS (4)
  1. PEGASYS [Suspect]
     Route: 058
     Dates: start: 20050926, end: 20051020
  2. COPEGUS [Suspect]
     Dosage: 2 TABLETS EVERY MORNING AND TWO TABLETS EVERY EVENING.
     Route: 048
     Dates: start: 20050926, end: 20051020
  3. HYDROCODONE BITARTRATE [Concomitant]
     Indication: ARTHRITIS
     Route: 048
  4. CELEXA [Concomitant]
     Indication: DEPRESSION

REACTIONS (6)
  - BLOOD TEST ABNORMAL [None]
  - CHOLELITHIASIS [None]
  - HEMIPLEGIA [None]
  - INFLUENZA LIKE ILLNESS [None]
  - THROMBOCYTOPENIA [None]
  - WHITE BLOOD CELL COUNT DECREASED [None]
